FAERS Safety Report 20601860 (Version 3)
Quarter: 2022Q4

REPORT INFORMATION
  Report Type: Report from Study
  Country: US (occurrence: US)
  Receive Date: 20220316
  Receipt Date: 20221209
  Transmission Date: 20230112
  Serious: Yes (Hospitalization, Other)
  Sender: FDA-Public Use
  Company Number: US-INSMED, INC.-2021-09423-US

PATIENT
  Age: 65 Year
  Sex: Female

DRUGS (2)
  1. ARIKAYCE [Suspect]
     Active Substance: AMIKACIN
     Indication: Mycobacterial infection
     Dosage: 590 MILLIGRAM, QD
     Route: 055
     Dates: start: 2021, end: 20210920
  2. ARIKAYCE [Suspect]
     Active Substance: AMIKACIN
     Dosage: 590 MILLIGRAM, TIW, MONDAY, WEDNESDAY, AND FRIDAY
     Route: 055
     Dates: start: 202109

REACTIONS (8)
  - Hospitalisation [Unknown]
  - Hepatic enzyme increased [Unknown]
  - Dyspnoea [Not Recovered/Not Resolved]
  - Pneumonitis [Unknown]
  - Aphonia [Recovered/Resolved]
  - Dysphonia [Not Recovered/Not Resolved]
  - Off label use [Unknown]
  - Therapy interrupted [Unknown]

NARRATIVE: CASE EVENT DATE: 20210608
